FAERS Safety Report 5101420-2 (Version None)
Quarter: 2006Q3

REPORT INFORMATION
  Report Type: 
  Country: None (occurrence: None)
  Receive Date: 20060911
  Receipt Date: 20060706
  Transmission Date: 20061208
  Serious: Yes (Hospitalization)
  Sender: FDA-Public Use
  Company Number: JP-JPN-A200602504

PATIENT
  Age: 75 Year
  Sex: Male
  Weight: 56 kg

DRUGS (10)
  1. PAXIL [Suspect]
     Indication: DEPRESSION
     Route: 048
     Dates: start: 20060619, end: 20060628
  2. DOGMATYL [Concomitant]
     Indication: DEPRESSION
     Dosage: 50MG PER DAY
     Route: 048
     Dates: start: 20060626, end: 20060628
  3. ABILIT [Concomitant]
     Indication: DEPRESSION
     Dosage: 100MG PER DAY
     Route: 048
     Dates: start: 20060619, end: 20060625
  4. CONSTAN [Concomitant]
     Indication: DEPRESSION
     Dosage: .8MG PER DAY
     Route: 048
     Dates: start: 20060619, end: 20060625
  5. RIZE [Concomitant]
     Indication: DEPRESSION
     Dosage: 10MG PER DAY
     Route: 048
     Dates: start: 20060626, end: 20060628
  6. MYSLEE [Concomitant]
     Indication: DEPRESSION
     Dosage: 10MG PER DAY
     Route: 048
     Dates: start: 20060626, end: 20060628
  7. ROHYPNOL [Concomitant]
     Indication: INSOMNIA
     Dosage: 1MG PER DAY
     Route: 048
     Dates: start: 20060619, end: 20060628
  8. GASTER D [Concomitant]
     Indication: GASTRIC ULCER
     Dosage: 40MG PER DAY
     Route: 048
     Dates: start: 20060619
  9. ALFAROL [Concomitant]
     Indication: OSTEOPOROSIS
     Dosage: .25MCG PER DAY
     Route: 048
  10. PREDONINE [Concomitant]
     Indication: SCLERITIS
     Route: 048
     Dates: start: 20060609

REACTIONS (11)
  - ARRHYTHMIA SUPRAVENTRICULAR [None]
  - DIZZINESS [None]
  - DIZZINESS POSTURAL [None]
  - EXTRASYSTOLES [None]
  - FALL [None]
  - HEART RATE DECREASED [None]
  - NUCLEAR MAGNETIC RESONANCE IMAGING BRAIN ABNORMAL [None]
  - ORTHOSTATIC HYPOTENSION [None]
  - SUPRAVENTRICULAR EXTRASYSTOLES [None]
  - VENTRICULAR EXTRASYSTOLES [None]
  - VISUAL ACUITY REDUCED [None]
